FAERS Safety Report 17308325 (Version 4)
Quarter: 2020Q1

REPORT INFORMATION
  Report Type: Spontaneous
  Country: PL (occurrence: PL)
  Receive Date: 20200123
  Receipt Date: 20200221
  Transmission Date: 20200409
  Serious: Yes (Hospitalization, Other)
  Sender: FDA-Public Use
  Company Number: NVSC2020PL005038

PATIENT
  Age: 45 Year
  Sex: Female

DRUGS (13)
  1. FUROSEMIDE. [Suspect]
     Active Substance: FUROSEMIDE
     Indication: OEDEMA PERIPHERAL
     Dosage: 4 DF, QD
     Route: 065
  2. LEVOTHYROXINE. [Concomitant]
     Active Substance: LEVOTHYROXINE
     Indication: HYPOTHYROIDISM
     Dosage: 150 UG, QD
     Route: 065
  3. INSULIN ASPART [Concomitant]
     Active Substance: INSULIN ASPART
     Indication: TYPE 1 DIABETES MELLITUS
     Dosage: PERMANENT DOSE
     Route: 065
  4. KETOPROFEN. [Suspect]
     Active Substance: KETOPROFEN
     Indication: PAIN IN EXTREMITY
     Dosage: 50 MG, WHEN AS NEEDED, PROBABLY EVEN UPTO 6-8 TABLETS PER 24 HOURS
     Route: 065
  5. KETOPROFEN. [Suspect]
     Active Substance: KETOPROFEN
     Indication: ARTHRALGIA
  6. KETOPROFEN. [Suspect]
     Active Substance: KETOPROFEN
     Indication: PAIN IN EXTREMITY
  7. PARACETAMOL [Suspect]
     Active Substance: ACETAMINOPHEN
     Indication: ARTHRALGIA
     Dosage: UNK
     Route: 065
  8. NIMESULIDE [Suspect]
     Active Substance: NIMESULIDE
     Indication: PAIN IN EXTREMITY
  9. PARACETAMOL [Suspect]
     Active Substance: ACETAMINOPHEN
     Indication: PAIN IN EXTREMITY
  10. HYPURIN ISOPHANE [Concomitant]
     Indication: TYPE 1 DIABETES MELLITUS
     Dosage: INJECTED AT BEDTIME
     Route: 065
  11. NIMESULIDE [Suspect]
     Active Substance: NIMESULIDE
     Indication: ARTHRALGIA
     Dosage: UNK
     Route: 065
  12. FUROSEMIDE. [Suspect]
     Active Substance: FUROSEMIDE
     Indication: SWELLING
  13. NPH INSULIN [Concomitant]
     Active Substance: INSULIN BEEF
     Indication: TYPE 1 DIABETES MELLITUS
     Dosage: PER DAY, INJECTED BEFORE SLEEP/INJECTION BEFORE BEDTIME
     Route: 065

REACTIONS (5)
  - Drug abuse [Recovered/Resolved]
  - Gastritis erosive [Recovered/Resolved]
  - Iron deficiency anaemia [Not Recovered/Not Resolved]
  - Intentional product misuse [Unknown]
  - Contraindicated product administered [Unknown]
